FAERS Safety Report 5246777-7 (Version None)
Quarter: 2007Q1

REPORT INFORMATION
  Report Type: 
  Country: None (occurrence: None)
  Receive Date: 20070223
  Receipt Date: 20070223
  Transmission Date: 20070707
  Serious: Yes (Hospitalization)
  Sender: FDA-Public Use
  Company Number: None

PATIENT
  Age: 19 Year
  Sex: Male

DRUGS (4)
  1. BACLOFEN [Suspect]
     Indication: MUSCLE SPASMS
     Dosage: 30MG THEN 20MG QID (4 TIMES/DA) PO
     Route: 048
     Dates: start: 20070205, end: 20070218
  2. BACLOFEN [Suspect]
     Indication: SPINAL CORD INJURY
     Dosage: 30MG THEN 20MG QID (4 TIMES/DA) PO
     Route: 048
     Dates: start: 20070205, end: 20070218
  3. PSYLLIUM [Concomitant]
  4. MULTI-VITAMIN [Concomitant]

REACTIONS (2)
  - HALLUCINATION, VISUAL [None]
  - OFF LABEL USE [None]
